FAERS Safety Report 25754204 (Version 1)
Quarter: 2025Q3

REPORT INFORMATION
  Report Type: Spontaneous
  Country: US (occurrence: US)
  Receive Date: 20250903
  Receipt Date: 20250903
  Transmission Date: 20251021
  Serious: No
  Sender: AMGEN
  Company Number: US-AMGEN-USASP2025173174

PATIENT
  Age: 73 Year
  Sex: Female

DRUGS (5)
  1. NEULASTA [Suspect]
     Active Substance: PEGFILGRASTIM
     Indication: White blood cell count decreased
     Route: 065
     Dates: start: 20250619
  2. NEULASTA [Suspect]
     Active Substance: PEGFILGRASTIM
     Route: 065
     Dates: start: 20250717
  3. NEULASTA [Suspect]
     Active Substance: PEGFILGRASTIM
     Route: 065
     Dates: start: 20250814
  4. PEGCETACOPLAN [Suspect]
     Active Substance: PEGCETACOPLAN
     Indication: Paroxysmal nocturnal haemoglobinuria
     Dosage: 1080MG/20ML T, 2 TIMES/WK
     Route: 058
     Dates: start: 20240430
  5. DARBEPOETIN ALFA [Concomitant]
     Active Substance: DARBEPOETIN ALFA

REACTIONS (13)
  - Haemoglobin decreased [Unknown]
  - White blood cell count decreased [Not Recovered/Not Resolved]
  - Headache [Unknown]
  - Chills [Recovering/Resolving]
  - Pyrexia [Recovering/Resolving]
  - Laboratory test abnormal [Unknown]
  - Platelet count decreased [Recovered/Resolved]
  - Pain [Recovering/Resolving]
  - Abdominal discomfort [Unknown]
  - Decreased appetite [Unknown]
  - Platelet count decreased [Unknown]
  - Injection site discomfort [Unknown]
  - Injection site pain [Unknown]

NARRATIVE: CASE EVENT DATE: 20250619
